FAERS Safety Report 7336606-X (Version None)
Quarter: 2011Q1

REPORT INFORMATION
  Report Type: 
  Country: None (occurrence: None)
  Receive Date: 20110307
  Receipt Date: 20110224
  Transmission Date: 20110831
  Serious: Yes (Life-Threatening)
  Sender: FDA-Public Use
  Company Number: JP-BAYER-2011-017898

PATIENT
  Age: 55 Year
  Sex: Male

DRUGS (3)
  1. AVELOX [Suspect]
     Indication: PYREXIA
     Dosage: 400 MG, QD
     Route: 048
     Dates: start: 20110217, end: 20110218
  2. ANTI-DIABETICS [Concomitant]
     Indication: DIABETES MELLITUS
     Dosage: UNK
     Route: 048
     Dates: end: 20110218
  3. AVELOX [Suspect]
     Indication: INFLAMMATION

REACTIONS (1)
  - HYPOGLYCAEMIA [None]
